FAERS Safety Report 7366125-6 (Version None)
Quarter: 2011Q1

REPORT INFORMATION
  Report Type: 
  Country: None (occurrence: None)
  Receive Date: 20110322
  Receipt Date: 20110308
  Transmission Date: 20110831
  Serious: Yes (Hospitalization)
  Sender: FDA-Public Use
  Company Number: US-JNJFOC-20080202183

PATIENT
  Sex: Male
  Weight: 71.8 kg

DRUGS (6)
  1. M.V.I. [Concomitant]
  2. PROBIOTICS [Concomitant]
  3. INFLIXIMAB [Suspect]
     Dosage: TOTAL 11 DOSES
     Route: 042
  4. FISH OIL [Concomitant]
  5. INFLIXIMAB [Suspect]
     Indication: CROHN'S DISEASE
     Route: 042
  6. METRONIDAZOLE [Concomitant]

REACTIONS (1)
  - PERIRECTAL ABSCESS [None]
